FAERS Safety Report 6440819-9 (Version None)
Quarter: 2009Q4

REPORT INFORMATION
  Report Type: 
  Country: None (occurrence: None)
  Receive Date: 20091116
  Receipt Date: 20091105
  Transmission Date: 20100525
  Serious: Yes (Other)
  Sender: FDA-Public Use
  Company Number: US-ASTRAZENECA-2008UW27651

PATIENT
  Age: 49 Year
  Sex: Female
  Weight: 81.6 kg

DRUGS (5)
  1. SEROQUEL [Suspect]
     Indication: DEPRESSION
     Route: 048
     Dates: start: 19980101, end: 20030930
  2. CYMBALTA [Concomitant]
  3. TRAZODONE HCL [Concomitant]
  4. DIAZEPAM [Concomitant]
  5. MIRTAPAPINE [Concomitant]

REACTIONS (8)
  - CEREBROVASCULAR ACCIDENT [None]
  - DEPRESSION [None]
  - DIABETES MELLITUS [None]
  - HERNIA [None]
  - KNEE ARTHROPLASTY [None]
  - PANCREATITIS [None]
  - RENAL FAILURE [None]
  - SLEEP STUDY [None]
